FAERS Safety Report 10610251 (Version 2)
Quarter: 2014Q4

REPORT INFORMATION
  Report Type: Report from Study
  Country: FR (occurrence: FR)
  Receive Date: 20141126
  Receipt Date: 20141126
  Transmission Date: 20150529
  Serious: Yes (Hospitalization)
  Sender: FDA-Public Use
  Company Number: FR-ABBVIE-14P-056-1302909-00

PATIENT
  Age: 35 Year
  Sex: Male
  Weight: 79 kg

DRUGS (2)
  1. ENBREL [Suspect]
     Active Substance: ETANERCEPT
     Indication: PSORIASIS
     Route: 065
     Dates: start: 20140705
  2. HUMIRA [Suspect]
     Active Substance: ADALIMUMAB
     Indication: PSORIASIS
     Route: 058
     Dates: start: 20140113, end: 20140623

REACTIONS (4)
  - Erectile dysfunction [Unknown]
  - Psoriasis [Recovering/Resolving]
  - Dermatitis psoriasiform [Recovering/Resolving]
  - Pain [Unknown]

NARRATIVE: CASE EVENT DATE: 20140611
